FAERS Safety Report 16929932 (Version 1)
Quarter: 2019Q4

REPORT INFORMATION
  Report Type: Spontaneous
  Country: GB (occurrence: GB)
  Receive Date: 20191017
  Receipt Date: 20191017
  Transmission Date: 20200122
  Serious: Yes (Life-Threatening)
  Sender: FDA-Public Use
  Company Number: GB-TEVA-2019-GB-1122936

PATIENT
  Age: 54 Year
  Sex: Male
  Weight: 133.1 kg

DRUGS (14)
  1. TRAMADOL. [Suspect]
     Active Substance: TRAMADOL
     Indication: ANALGESIC THERAPY
     Dosage: 100MG 4 DAILY AS REQUIRED
     Route: 048
     Dates: start: 20190915, end: 20190915
  2. LACTULOSE. [Concomitant]
     Active Substance: LACTULOSE
     Dosage: 10 ML
  3. MORPHINE SULFATE. [Concomitant]
     Active Substance: MORPHINE SULFATE
     Dosage: 10MG/5ML  4 TIMES DAILY, 5 MG
  4. QVAR [Concomitant]
     Active Substance: BECLOMETHASONE DIPROPIONATE
     Dosage: 100MCG/DOSE. PUFF, 200 MCG
  5. SODIUM VALPROATE [Concomitant]
     Active Substance: VALPROATE SODIUM
     Dosage: 400 MG
  6. TINZAPARIN [Concomitant]
     Active Substance: TINZAPARIN
     Dosage: 7000 IU
  7. BACLOFEN. [Concomitant]
     Active Substance: BACLOFEN
     Dosage: 15 MG
  8. FEBUXOSTAT. [Concomitant]
     Active Substance: FEBUXOSTAT
     Dosage: MORNING, 80 MG
  9. PREGABALIN. [Concomitant]
     Active Substance: PREGABALIN
     Dosage: 300 MG
  10. SALBUTAMOL [Concomitant]
     Active Substance: ALBUTEROL
     Dosage: 100MCG/DOSE. 2 PUFFS, 2 DF
  11. FEXOFENADINE [Concomitant]
     Active Substance: FEXOFENADINE HYDROCHLORIDE
     Dosage: MORNING, 180 MG
  12. RAMIPRIL. [Concomitant]
     Active Substance: RAMIPRIL
     Dosage: MORNING, 10 MG
  13. CHLORPHENAMINE [Concomitant]
     Active Substance: CHLORPHENIRAMINE MALEATE
     Dosage: ONCE DAILY, 4 MG
  14. CASSIA [Concomitant]
     Dosage: NIGHT, 15 MG

REACTIONS (1)
  - Myoclonic epilepsy [Recovered/Resolved]

NARRATIVE: CASE EVENT DATE: 20190915
